FAERS Safety Report 5605507-7 (Version None)
Quarter: 2008Q1

REPORT INFORMATION
  Report Type: 
  Country: None (occurrence: None)
  Receive Date: 20080124
  Receipt Date: 20080124
  Transmission Date: 20080703
  Serious: Yes (Hospitalization)
  Sender: FDA-Public Use
  Company Number: None

PATIENT
  Age: 50 Year
  Sex: Female
  Weight: 114.3065 kg

DRUGS (2)
  1. IXEMPRA -IXABEPILONE- 45 MG VIAL BRISTOL-MYERS SQUIBB COMPANY [Suspect]
     Indication: BREAST CANCER METASTATIC
     Dosage: 80 MG EVERY 3 WEEKS IV DRIP
     Route: 041
     Dates: start: 20071117, end: 20071117
  2. IXEMPRA -IXABEPILONE- 45 MG VIAL BRISTOL-MYERS SQUIBB COMPANY [Suspect]
     Indication: TREATMENT FAILURE
     Dosage: 80 MG EVERY 3 WEEKS IV DRIP
     Route: 041
     Dates: start: 20071117, end: 20071117

REACTIONS (5)
  - ABDOMINAL PAIN [None]
  - ASCITES [None]
  - NAUSEA [None]
  - NEUTROPENIA [None]
  - VOMITING [None]
